FAERS Safety Report 18382418 (Version 1)
Quarter: 2020Q4

REPORT INFORMATION
  Report Type: Spontaneous
  Country: US (occurrence: US)
  Receive Date: 20201014
  Receipt Date: 20201014
  Transmission Date: 20210114
  Serious: No
  Sender: FDA-Public Use
  Company Number: US-ASTRAZENECA-2020SF19795

PATIENT
  Age: 78 Year
  Sex: Male
  Weight: 79.4 kg

DRUGS (1)
  1. TAGRISSO [Suspect]
     Active Substance: OSIMERTINIB
     Indication: LUNG NEOPLASM MALIGNANT
     Route: 048
     Dates: start: 202003

REACTIONS (2)
  - Skin lesion [Not Recovered/Not Resolved]
  - Rash vesicular [Not Recovered/Not Resolved]
